FAERS Safety Report 14893564 (Version 1)
Quarter: 2018Q2

REPORT INFORMATION
  Report Type: Report from Study
  Country: IL (occurrence: IL)
  Receive Date: 20180514
  Receipt Date: 20180514
  Transmission Date: 20180711
  Serious: Yes (Death, Hospitalization, Other)
  Sender: FDA-Public Use
  Company Number: IL-SHIRE-IL201809152AA

PATIENT

DRUGS (1)
  1. VPRIV [Suspect]
     Active Substance: VELAGLUCERASE ALFA
     Indication: GAUCHER^S DISEASE
     Dosage: 1200 IU, 2X A WEEK
     Route: 065
     Dates: start: 201611

REACTIONS (10)
  - Weight decreased [Unknown]
  - Pseudomonas infection [Unknown]
  - Dysphagia [Unknown]
  - Death [Fatal]
  - Headache [Unknown]
  - Ear infection [Unknown]
  - Otitis media [Unknown]
  - Dysphonia [Unknown]
  - Osteitis [Unknown]
  - Nasal abscess [Unknown]
